FAERS Safety Report 21330773 (Version 1)
Quarter: 2022Q3

REPORT INFORMATION
  Report Type: Spontaneous
  Country: AU (occurrence: AU)
  Receive Date: 20220914
  Receipt Date: 20220914
  Transmission Date: 20221026
  Serious: Yes (Hospitalization)
  Sender: FDA-Public Use
  Company Number: AU-STRIDES ARCOLAB LIMITED-2022SP011540

PATIENT
  Age: 2 Year
  Sex: Male

DRUGS (4)
  1. PREDNISOLONE [Suspect]
     Active Substance: PREDNISOLONE
     Indication: Opsoclonus myoclonus
     Dosage: 14 MILLIGRAM PER DAY
     Route: 065
  2. PREDNISOLONE [Suspect]
     Active Substance: PREDNISOLONE
     Indication: Ataxia
     Dosage: UNK (WEANED OFF)
     Route: 065
  3. AZATHIOPRINE [Suspect]
     Active Substance: AZATHIOPRINE
     Indication: Opsoclonus myoclonus
     Dosage: 20 MILLIGRAM PER DAY
     Route: 065
  4. AZATHIOPRINE [Suspect]
     Active Substance: AZATHIOPRINE
     Indication: Ataxia
     Dosage: UNK (DOSE INCREASED)
     Route: 065

REACTIONS (3)
  - Pneumatosis intestinalis [Recovered/Resolved]
  - Intussusception [Recovered/Resolved]
  - Off label use [Unknown]
